FAERS Safety Report 23833678 (Version 2)
Quarter: 2024Q2

REPORT INFORMATION
  Report Type: Spontaneous
  Country: US (occurrence: US)
  Receive Date: 20240508
  Receipt Date: 20240510
  Transmission Date: 20240716
  Serious: Yes (Other)
  Sender: FDA-Public Use
  Company Number: US-ABBVIE-5751603

PATIENT
  Age: 64 Year
  Sex: Male

DRUGS (2)
  1. COMBIGAN [Suspect]
     Active Substance: BRIMONIDINE TARTRATE\TIMOLOL MALEATE
     Indication: Intraocular pressure test abnormal
     Dosage: UNKNOWN
     Route: 047
     Dates: start: 202402
  2. TADALAFIL [Concomitant]
     Active Substance: TADALAFIL
     Indication: Sexual dysfunction

REACTIONS (2)
  - Macular degeneration [Not Recovered/Not Resolved]
  - Macular oedema [Not Recovered/Not Resolved]

NARRATIVE: CASE EVENT DATE: 20240201
